FAERS Safety Report 6666760-4 (Version None)
Quarter: 2010Q1

REPORT INFORMATION
  Report Type: 
  Country: None (occurrence: None)
  Receive Date: 20100331
  Receipt Date: 20100317
  Transmission Date: 20100710
  Serious: Yes (Death, Life-Threatening, Hospitalization)
  Sender: FDA-Public Use
  Company Number: ES-JNJFOC-20070401772

PATIENT
  Age: 73 Year
  Sex: Male

DRUGS (6)
  1. DECITABINE (DECITABINE) [Suspect]
     Indication: ACUTE MYELOID LEUKAEMIA
     Dosage: 36 MG; INTRAVENOUS
     Route: 042
     Dates: start: 20070309, end: 20070313
  2. MEROPENEM [Concomitant]
  3. ONDANSETRON [Concomitant]
  4. FUROSEMIDA (FUROSEMIDE) [Concomitant]
  5. TEICOPLANINA (TEICOPLANIN) [Concomitant]
  6. AMIKACINA (AMIKACIN) [Concomitant]

REACTIONS (16)
  - CARDIAC FAILURE [None]
  - CARDIOMEGALY [None]
  - CARDIOPULMONARY FAILURE [None]
  - CHOLESTASIS [None]
  - CONFUSIONAL STATE [None]
  - DEPRESSED LEVEL OF CONSCIOUSNESS [None]
  - DISORIENTATION [None]
  - EPISTAXIS [None]
  - GENERAL PHYSICAL HEALTH DETERIORATION [None]
  - GENERALISED OEDEMA [None]
  - HYPOALBUMINAEMIA [None]
  - LEFT VENTRICULAR DYSFUNCTION [None]
  - PALLOR [None]
  - PETECHIAE [None]
  - RESPIRATORY DISORDER [None]
  - SEPSIS [None]
